FAERS Safety Report 4645036-0 (Version None)
Quarter: 2005Q2

REPORT INFORMATION
  Report Type: 
  Country: None (occurrence: None)
  Receive Date: 20050426
  Receipt Date: 20050413
  Transmission Date: 20051028
  Serious: Yes (Other)
  Sender: FDA-Public Use
  Company Number: GBWYE582613APR05

PATIENT
  Age: 70 Year
  Sex: Female
  Weight: 64 kg

DRUGS (3)
  1. ENBREL [Suspect]
     Indication: RHEUMATOID ARTHRITIS
     Route: 058
  2. ETODOLAC [Concomitant]
  3. PARACETAMOL [Concomitant]

REACTIONS (2)
  - ARTHRALGIA [None]
  - RHEUMATOID NODULE [None]
